FAERS Safety Report 8962405 (Version 1)
Quarter: 2012Q4

REPORT INFORMATION
  Report Type: Spontaneous
  Country: US (occurrence: None)
  Receive Date: 20121211
  Receipt Date: 20121211
  Transmission Date: 20130627
  Serious: Yes (Life-Threatening, Hospitalization)
  Sender: FDA-Public Use
  Company Number: None

PATIENT
  Age: 76 Year
  Sex: Male
  Weight: 67.1 kg

DRUGS (1)
  1. LISINOPRIL [Suspect]
     Dates: start: 19971211, end: 20120317

REACTIONS (11)
  - Hyperkalaemia [None]
  - Haemodialysis [None]
  - Polymedication [None]
  - Renal failure acute [None]
  - Metabolic acidosis [None]
  - Lactic acidosis [None]
  - Extrasystoles [None]
  - Ventricular extrasystoles [None]
  - Ventricular tachycardia [None]
  - Duodenal ulcer [None]
  - Non-alcoholic steatohepatitis [None]
